FAERS Safety Report 21871676 (Version 1)
Quarter: 2023Q1

REPORT INFORMATION
  Report Type: Spontaneous
  Country: US (occurrence: None)
  Receive Date: 20230113
  Receipt Date: 20230113
  Transmission Date: 20230418
  Serious: Yes (Other)
  Sender: FDA-Public Use
  Company Number: None

PATIENT
  Sex: Male
  Weight: 2.72 kg

DRUGS (2)
  1. SUMATRIPTAN [Suspect]
     Active Substance: SUMATRIPTAN
     Indication: Migraine
     Dosage: FREQUENCY : AS NEEDED;?
     Route: 048
     Dates: start: 2016
  2. ATENOLOL [Suspect]
     Active Substance: ATENOLOL
     Indication: Migraine prophylaxis
     Dosage: FREQUENCY : DAILY;?
     Route: 048
     Dates: start: 20190101

REACTIONS (7)
  - Foetal hypokinesia [None]
  - Foetal biophysical profile score abnormal [None]
  - Pregnancy [None]
  - Maternal exposure before pregnancy [None]
  - Maternal drugs affecting foetus [None]
  - Caesarean section [None]
  - Term baby [None]

NARRATIVE: CASE EVENT DATE: 20221118
